FAERS Safety Report 15555009 (Version 4)
Quarter: 2019Q1

REPORT INFORMATION
  Report Type: Spontaneous
  Country: US (occurrence: US)
  Receive Date: 20181026
  Receipt Date: 20190121
  Transmission Date: 20190417
  Serious: Yes (Other)
  Sender: FDA-Public Use
  Company Number: PHHY2018US135905

PATIENT
  Sex: Female

DRUGS (1)
  1. SYSTANE LUBRICANT [Suspect]
     Active Substance: POLYETHYLENE GLYCOL 400\PROPYLENE GLYCOL
     Indication: PRODUCT USED FOR UNKNOWN INDICATION
     Route: 047
     Dates: start: 2017

REACTIONS (5)
  - Conjunctival haemorrhage [Unknown]
  - Expired product administered [Unknown]
  - Product dropper issue [Unknown]
  - Corneal abrasion [Unknown]
  - Eye haemorrhage [Recovered/Resolved]
